FAERS Safety Report 8312709-8 (Version None)
Quarter: 2012Q2

REPORT INFORMATION
  Report Type: 
  Country: None (occurrence: None)
  Receive Date: 20120426
  Receipt Date: 20120417
  Transmission Date: 20120825
  Serious: Yes (Hospitalization)
  Sender: FDA-Public Use
  Company Number: 2005BI015669

PATIENT
  Age: 48 Year
  Sex: Female

DRUGS (2)
  1. AVONEX [Suspect]
     Indication: MULTIPLE SCLEROSIS
     Route: 030
     Dates: start: 19990701, end: 20050601
  2. AVONEX [Suspect]
     Route: 030
     Dates: start: 20060101

REACTIONS (4)
  - BREAST CANCER [None]
  - BREAST INFECTION [None]
  - MULTIPLE SCLEROSIS [None]
  - PAIN [None]
